FAERS Safety Report 6157954-5 (Version None)
Quarter: 2009Q2

REPORT INFORMATION
  Report Type: 
  Country: None (occurrence: None)
  Receive Date: 20090417
  Receipt Date: 20090409
  Transmission Date: 20091009
  Serious: Yes (Hospitalization)
  Sender: FDA-Public Use
  Company Number: FR-JNJFOC-20090403053

PATIENT
  Sex: Female

DRUGS (8)
  1. RISPERDAL [Suspect]
     Indication: BIPOLAR I DISORDER
     Route: 065
     Dates: end: 20090314
  2. THERALENE [Suspect]
     Indication: SLEEP DISORDER
     Route: 065
     Dates: end: 20090314
  3. ATENOLOL [Concomitant]
     Indication: HYPERTENSION
     Route: 065
  4. CO APROVEL [Concomitant]
     Indication: HYPERTENSION
     Dosage: 300 MG/12,5
     Route: 065
  5. DEPAMIDE [Concomitant]
     Indication: BIPOLAR I DISORDER
     Route: 065
  6. PARKINANE [Concomitant]
     Indication: PARKINSONISM
     Route: 065
  7. SULFARLEM [Concomitant]
     Indication: DRUG USE FOR UNKNOWN INDICATION
     Route: 065
  8. LORAZEPAM [Concomitant]
     Indication: ANXIETY
     Route: 065

REACTIONS (8)
  - ABDOMINAL PAIN [None]
  - CONSTIPATION [None]
  - HEADACHE [None]
  - HYPERHIDROSIS [None]
  - HYPERTHERMIA [None]
  - INFLAMMATION [None]
  - LEUKOCYTOSIS [None]
  - VOMITING [None]
